FAERS Safety Report 13291918 (Version 1)
Quarter: 2017Q1

REPORT INFORMATION
  Report Type: Spontaneous
  Country: US (occurrence: US)
  Receive Date: 20170303
  Receipt Date: 20170303
  Transmission Date: 20170428
  Serious: Yes (Hospitalization)
  Sender: FDA-Public Use
  Company Number: None

PATIENT
  Age: 82 Year
  Sex: Male
  Weight: 88 kg

DRUGS (5)
  1. CYCLOPHOSPHAMIDE. [Suspect]
     Active Substance: CYCLOPHOSPHAMIDE
     Dates: end: 20170221
  2. DOXORUBICIN HYDROCHLORIDE. [Suspect]
     Active Substance: DOXORUBICIN HYDROCHLORIDE
     Dates: end: 20170221
  3. PREDNISONE. [Suspect]
     Active Substance: PREDNISONE
     Dates: end: 20170226
  4. RITUXIMAB (MOAB C2B8 ANTI CD20, CHIMERIC) [Suspect]
     Active Substance: RITUXIMAB
     Dates: end: 20170221
  5. VINCRISTINE SULFATE. [Suspect]
     Active Substance: VINCRISTINE SULFATE
     Dates: end: 20170221

REACTIONS (12)
  - Granulocyte count decreased [None]
  - Fatigue [None]
  - Oropharyngeal pain [None]
  - Pneumonia [None]
  - Asthenia [None]
  - Sepsis [None]
  - Herpes zoster [None]
  - Body temperature increased [None]
  - Rash vesicular [None]
  - Fall [None]
  - Dysstasia [None]
  - White blood cell count decreased [None]

NARRATIVE: CASE EVENT DATE: 20170228
